FAERS Safety Report 9693038 (Version 1)
Quarter: 2013Q4

REPORT INFORMATION
  Report Type: Spontaneous
  Country: US (occurrence: None)
  Receive Date: 20131115
  Receipt Date: 20131115
  Transmission Date: 20140711
  Serious: Yes (Other)
  Sender: FDA-Public Use
  Company Number: None

PATIENT
  Age: 34 Year
  Sex: Female
  Weight: 97 kg

DRUGS (4)
  1. ARMOUR THYROID [Suspect]
     Indication: HYPOTHYROIDISM
     Route: 048
     Dates: end: 20121115
  2. ARMOUR THYROID [Suspect]
     Route: 048
     Dates: end: 20121115
  3. SYNTHROID [Concomitant]
  4. CELEXA [Concomitant]

REACTIONS (4)
  - Goitre [None]
  - Thyroid neoplasm [None]
  - Product substitution issue [None]
  - Hypothyroidism [None]
